FAERS Safety Report 9074840 (Version 1)
Quarter: 2013Q1

REPORT INFORMATION
  Report Type: Report from Study
  Country: US (occurrence: US)
  Receive Date: 20130129
  Receipt Date: 20130129
  Transmission Date: 20140127
  Serious: No
  Sender: FDA-Public Use
  Company Number: US-ABBOTT-12P-163-0932643-00

PATIENT
  Sex: Female
  Weight: 83.99 kg

DRUGS (3)
  1. LUPRON DEPOT 7.5 MG [Suspect]
     Indication: PROSTATE CANCER
     Dates: start: 2011
  2. VICODIN [Suspect]
     Indication: PAIN IN EXTREMITY
     Dosage: 1-2 TABLETS. 5/500 MG
     Dates: start: 20120416
  3. ZYTIGA [Concomitant]
     Indication: PROSTATE CANCER
     Dates: start: 20120502

REACTIONS (7)
  - Pain in extremity [Not Recovered/Not Resolved]
  - Pain [Not Recovered/Not Resolved]
  - Sciatica [Not Recovered/Not Resolved]
  - Unevaluable event [Not Recovered/Not Resolved]
  - Prostatic specific antigen increased [Not Recovered/Not Resolved]
  - Constipation [Recovered/Resolved]
  - Prostate cancer [Not Recovered/Not Resolved]
